FAERS Safety Report 9399735 (Version 1)
Quarter: 2013Q3

REPORT INFORMATION
  Report Type: Report from Study
  Country: TW (occurrence: TW)
  Receive Date: 20130715
  Receipt Date: 20130715
  Transmission Date: 20140515
  Serious: No
  Sender: FDA-Public Use
  Company Number: PHHY2013TW074117

PATIENT
  Age: 46 Year
  Sex: Male

DRUGS (12)
  1. AMN107 [Suspect]
     Dosage: 800 MG, UNK
     Dates: start: 20110422
  2. METFORMIN [Concomitant]
     Indication: DIABETES MELLITUS
  3. FUROSEMIDE [Concomitant]
     Indication: PROPHYLAXIS
     Dates: start: 20110311, end: 20110429
  4. FINSKA [Concomitant]
     Indication: RHINORRHOEA
     Dates: start: 20111014, end: 20111021
  5. LORATADINE [Concomitant]
     Indication: UPPER RESPIRATORY TRACT INFECTION
     Dates: start: 20111223, end: 20120112
  6. LORATADINE [Concomitant]
     Dosage: UNK
     Dates: start: 20120525, end: 20120606
  7. DEXTROMETHORPHAN [Concomitant]
     Indication: UPPER RESPIRATORY TRACT INFECTION
     Dates: start: 20111223, end: 20120106
  8. ACETAMINOPHEN [Concomitant]
     Indication: UPPER RESPIRATORY TRACT INFECTION
     Dates: start: 20120106, end: 20120113
  9. BROWN MIXTURE                      /01682301/ [Concomitant]
     Indication: UPPER RESPIRATORY TRACT INFECTION
     Dates: start: 20120106, end: 20120127
  10. ACARBOSE [Concomitant]
     Indication: DIABETES MELLITUS
     Dates: start: 20120907
  11. GLIMEPIRIDE [Concomitant]
     Indication: DIABETES MELLITUS
     Dates: start: 20120928, end: 20121228
  12. SITAGLIPTIN [Concomitant]
     Indication: DIABETES MELLITUS
     Dates: start: 20120125

REACTIONS (1)
  - Muscle spasms [Unknown]
